FAERS Safety Report 17907503 (Version 1)
Quarter: 2020Q2

REPORT INFORMATION
  Report Type: Spontaneous
  Country: CA (occurrence: CA)
  Receive Date: 20200617
  Receipt Date: 20200617
  Transmission Date: 20200714
  Serious: Yes (Life-Threatening, Hospitalization)
  Sender: FDA-Public Use
  Company Number: CA-TEVA-2020-CA-1788153

PATIENT
  Age: 8 Year
  Sex: Male
  Weight: 42 kg

DRUGS (10)
  1. PENTAMIDINE ISETHIONATE INJ 300MG/VIAL BP [Concomitant]
  2. FAMCICLOVIR. [Concomitant]
     Active Substance: FAMCICLOVIR
  3. METHOTREXATE. [Suspect]
     Active Substance: METHOTREXATE
     Route: 065
  4. BESPONSA [Suspect]
     Active Substance: INOTUZUMAB OZOGAMICIN
     Route: 065
  5. LINEZOLID. [Concomitant]
     Active Substance: LINEZOLID
  6. SEPTRA [Concomitant]
     Active Substance: SULFAMETHOXAZOLE\TRIMETHOPRIM
  7. TERBINAFINE. [Concomitant]
     Active Substance: TERBINAFINE
  8. CASPOFUNGIN [Concomitant]
     Active Substance: CASPOFUNGIN
  9. LEVAQUIN [Concomitant]
     Active Substance: LEVOFLOXACIN
  10. VORICONAZOLE. [Concomitant]
     Active Substance: VORICONAZOLE

REACTIONS (1)
  - Febrile neutropenia [Not Recovered/Not Resolved]
